FAERS Safety Report 17142960 (Version 1)
Quarter: 2019Q4

REPORT INFORMATION
  Report Type: Spontaneous
  Country: US (occurrence: US)
  Receive Date: 20191211
  Receipt Date: 20191211
  Transmission Date: 20200122
  Serious: No
  Sender: FDA-Public Use
  Company Number: US-PURDUE-USA-2019-0146945

PATIENT
  Sex: Female
  Weight: 79.37 kg

DRUGS (1)
  1. HYDROMORPHONE TABLET (RHODES) [Suspect]
     Active Substance: HYDROMORPHONE
     Indication: PROCEDURAL PAIN
     Dosage: (1-2 X 2 MG) 2 MG- 4 MG, Q4H PRN
     Route: 048
     Dates: start: 20190417

REACTIONS (2)
  - Product physical issue [Unknown]
  - Inadequate analgesia [Unknown]
